FAERS Safety Report 22383347 (Version 1)
Quarter: 2023Q2

REPORT INFORMATION
  Report Type: Report from Study
  Country: IT (occurrence: IT)
  Receive Date: 20230530
  Receipt Date: 20230530
  Transmission Date: 20230721
  Serious: Yes (Life-Threatening, Hospitalization)
  Sender: FDA-Public Use
  Company Number: None

PATIENT
  Age: 2 Year
  Sex: Male
  Weight: 14 kg

DRUGS (4)
  1. CYTARABINE [Suspect]
     Active Substance: CYTARABINE
     Indication: Acute lymphocytic leukaemia
     Dosage: CYCLIC THERAPY, 46 MG
     Dates: start: 20220217, end: 20221203
  2. DOXORUBICIN HYDROCHLORIDE [Suspect]
     Active Substance: DOXORUBICIN HYDROCHLORIDE
     Dosage: 18 MG
     Dates: start: 20220810, end: 20220915
  3. METHOTREXATE SODIUM [Suspect]
     Active Substance: METHOTREXATE SODIUM
     Dosage: 10 MG, CYCLIC
     Route: 037
     Dates: start: 20220217, end: 20220930
  4. VINCRISTINE SULFATE [Suspect]
     Active Substance: VINCRISTINE SULFATE
     Dosage: 0.93 MG, CYCLIC
     Dates: start: 20220810, end: 20220915

REACTIONS (2)
  - Febrile neutropenia [Recovered/Resolved with Sequelae]
  - Anaemia [Recovered/Resolved]

NARRATIVE: CASE EVENT DATE: 20220423
